FAERS Safety Report 17394650 (Version 1)
Quarter: 2020Q1

REPORT INFORMATION
  Report Type: Spontaneous
  Country: FR (occurrence: FR)
  Receive Date: 20200210
  Receipt Date: 20200210
  Transmission Date: 20200409
  Serious: Yes (Hospitalization)
  Sender: FDA-Public Use
  Company Number: FR-SUN PHARMACEUTICAL INDUSTRIES LTD-2020RR-236080

PATIENT
  Age: 41 Year
  Sex: Male
  Weight: 67 kg

DRUGS (3)
  1. OXALIPLATIN. [Suspect]
     Active Substance: OXALIPLATIN
     Indication: RECTAL ADENOCARCINOMA
     Dosage: PREMIERE CURE
     Route: 042
     Dates: start: 20191218
  2. FLUOROURACILE [Suspect]
     Active Substance: FLUOROURACIL
     Indication: RECTAL ADENOCARCINOMA
     Dosage: PREMIERE CURE
     Route: 042
     Dates: start: 20191218, end: 20191220
  3. LEVOFOLINATE DISODIQUE [Suspect]
     Active Substance: LEVOLEUCOVORIN DISODIUM
     Indication: RECTAL ADENOCARCINOMA
     Dosage: 370 MILLIGRAM, UNK
     Route: 042
     Dates: start: 20191218

REACTIONS (1)
  - Focal dyscognitive seizures [Recovered/Resolved]

NARRATIVE: CASE EVENT DATE: 20191220
